FAERS Safety Report 18582911 (Version 1)
Quarter: 2020Q4

REPORT INFORMATION
  Report Type: Report from Study
  Country: US (occurrence: US)
  Receive Date: 20201205
  Receipt Date: 20201205
  Transmission Date: 20210114
  Serious: No
  Sender: FDA-Public Use
  Company Number: NVSC2020US323804

PATIENT
  Sex: Male

DRUGS (1)
  1. COSENTYX [Suspect]
     Active Substance: SECUKINUMAB
     Indication: PRODUCT USED FOR UNKNOWN INDICATION
     Dosage: 150 MG, QMO(150 MG TWO PEN SSUBSEQUENTLY AT A WEEK 0, 1, 2, AND 3)
     Route: 058

REACTIONS (2)
  - Product dose omission issue [Unknown]
  - Back pain [Unknown]
